FAERS Safety Report 9761613 (Version 1)
Quarter: 2013Q4

REPORT INFORMATION
  Report Type: Spontaneous
  Country: US (occurrence: US)
  Receive Date: 20131216
  Receipt Date: 20131216
  Transmission Date: 20140711
  Serious: No
  Sender: FDA-Public Use
  Company Number: US-PFIZER INC-2013353810

PATIENT
  Age: 68 Year
  Sex: Male
  Weight: 61.22 kg

DRUGS (6)
  1. VFEND [Suspect]
     Indication: PROPHYLAXIS
     Dosage: 200 MG, 2X/DAY
  2. PROGRAF [Concomitant]
     Indication: LUNG DISORDER
     Dosage: 0.5 MG, 2X/DAY
  3. CELLCEPT [Concomitant]
     Indication: LUNG DISORDER
     Dosage: 500 MG, 2X/DAY
  4. PREDNISONE [Concomitant]
     Indication: LUNG DISORDER
     Dosage: 5 MG, 1X/DAY
  5. VALCYTE [Concomitant]
     Indication: ANTIVIRAL PROPHYLAXIS
     Dosage: 450 MG, 1X/DAY
  6. BACTRIM [Concomitant]
     Indication: BACTERIAL INFECTION
     Dosage: 800/160 MG, 3X/WEEK

REACTIONS (3)
  - Skin discolouration [Not Recovered/Not Resolved]
  - Pruritus [Not Recovered/Not Resolved]
  - Photosensitivity reaction [Unknown]
